FAERS Safety Report 10935706 (Version 2)
Quarter: 2015Q2

REPORT INFORMATION
  Report Type: Spontaneous
  Country: BR (occurrence: BR)
  Receive Date: 20150320
  Receipt Date: 20150420
  Transmission Date: 20150821
  Serious: Yes (Other)
  Sender: FDA-Public Use
  Company Number: BR-MUNDIPHARMA DS AND PHARMACOVIGILANCE-GBR-2015-0026307

PATIENT
  Age: 53 Year
  Sex: Female

DRUGS (4)
  1. TOPIRAMATE. [Concomitant]
     Active Substance: TOPIRAMATE
     Indication: EPILEPSY
     Dosage: 100 MG, DAILY
     Route: 048
  2. BUPRENORPHINE TRANSDERMAL SYSTEM 5 MG [Suspect]
     Active Substance: BUPRENORPHINE
     Indication: FIBROMYALGIA
  3. CARBAMAZEPINE. [Concomitant]
     Active Substance: CARBAMAZEPINE
     Indication: EPILEPSY
     Dosage: 2 UNK, BID
     Route: 048
  4. BUPRENORPHINE TRANSDERMAL SYSTEM 5 MG [Suspect]
     Active Substance: BUPRENORPHINE
     Indication: NEURALGIA
     Dosage: 5 MCG, Q1H
     Route: 062
     Dates: start: 20150225, end: 20150304

REACTIONS (13)
  - Hypoaesthesia [Recovered/Resolved]
  - Nausea [Recovered/Resolved]
  - Muscle rigidity [Recovered/Resolved]
  - Dyspnoea [Recovered/Resolved]
  - Hypoaesthesia [Recovered/Resolved]
  - Blood urine present [Recovered/Resolved]
  - Hypertension [Recovered/Resolved]
  - Tachycardia [Recovered/Resolved]
  - Trismus [Recovered/Resolved]
  - Drug withdrawal syndrome [Recovered/Resolved]
  - Chest pain [Recovered/Resolved]
  - Chest pain [Recovered/Resolved]
  - Urinary tract infection [Recovered/Resolved]

NARRATIVE: CASE EVENT DATE: 20150304
